FAERS Safety Report 5796681-0 (Version None)
Quarter: 2008Q2

REPORT INFORMATION
  Report Type: 
  Country: None (occurrence: None)
  Receive Date: 20080630
  Receipt Date: 20080630
  Transmission Date: 20081010
  Serious: Yes (Life-Threatening)
  Sender: FDA-Public Use
  Company Number: None

PATIENT
  Age: 86 Year
  Sex: Female
  Weight: 39.9165 kg

DRUGS (2)
  1. LYRICA [Suspect]
     Indication: BACK PAIN
     Dosage: 1 TWICE DAILY PO
     Route: 048
     Dates: start: 20080624, end: 20080624
  2. LYRICA [Suspect]
     Indication: MUSCULOSKELETAL CHEST PAIN
     Dosage: 1 TWICE DAILY PO
     Route: 048
     Dates: start: 20080624, end: 20080624

REACTIONS (7)
  - CEREBROVASCULAR ACCIDENT [None]
  - FEELING ABNORMAL [None]
  - HERPES ZOSTER [None]
  - LOSS OF CONSCIOUSNESS [None]
  - MONOPARESIS [None]
  - NAUSEA [None]
  - SPEECH DISORDER [None]
